FAERS Safety Report 10945543 (Version 5)
Quarter: 2015Q4

REPORT INFORMATION
  Report Type: Report from Study
  Country: GB (occurrence: GB)
  Receive Date: 20150323
  Receipt Date: 20151023
  Transmission Date: 20160304
  Serious: Yes (Death, Hospitalization, Other)
  Sender: FDA-Public Use
  Company Number: GB-ABBVIE-15K-167-1361210-00

PATIENT
  Age: 58 Year
  Sex: Male
  Weight: 84.5 kg

DRUGS (8)
  1. OLMESARTAN MEDOXOMIL. [Concomitant]
     Active Substance: OLMESARTAN MEDOXOMIL
     Indication: PRODUCT USED FOR UNKNOWN INDICATION
     Dates: start: 19980115, end: 20150205
  2. IRON SORBITOL [Concomitant]
     Indication: PRODUCT USED FOR UNKNOWN INDICATION
     Dates: start: 20111209
  3. HYDROMOL [Concomitant]
     Indication: PRODUCT USED FOR UNKNOWN INDICATION
     Dates: start: 20121130
  4. ALLOPURINOL. [Concomitant]
     Active Substance: ALLOPURINOL
     Indication: PRODUCT USED FOR UNKNOWN INDICATION
     Dates: start: 19970101
  5. HUMIRA [Suspect]
     Active Substance: ADALIMUMAB
     Indication: PSORIASIS
     Route: 058
     Dates: start: 20130614, end: 20140606
  6. CETIRIZINE [Concomitant]
     Active Substance: CETIRIZINE HYDROCHLORIDE
     Indication: PRODUCT USED FOR UNKNOWN INDICATION
     Dates: start: 20120210, end: 20150205
  7. CETIRIZINE [Concomitant]
     Active Substance: CETIRIZINE HYDROCHLORIDE
     Dates: start: 20150215
  8. ALLOPURINOL. [Concomitant]
     Active Substance: ALLOPURINOL
     Dates: start: 19970115

REACTIONS (12)
  - Asthenia [Fatal]
  - Diarrhoea [Fatal]
  - Clostridium difficile infection [Fatal]
  - Dysuria [Fatal]
  - Decreased appetite [Fatal]
  - Squamous cell carcinoma of the oral cavity [Unknown]
  - Candida infection [Unknown]
  - Malaise [Fatal]
  - Dehydration [Fatal]
  - Oesophageal cancer metastatic [Fatal]
  - Anaemia [Unknown]
  - Lower respiratory tract infection [Fatal]

NARRATIVE: CASE EVENT DATE: 20140314
